FAERS Safety Report 8209307-3 (Version None)
Quarter: 2012Q1

REPORT INFORMATION
  Report Type: 
  Country: None (occurrence: None)
  Receive Date: 20120314
  Receipt Date: 20120305
  Transmission Date: 20120608
  Serious: Yes (Hospitalization, Other)
  Sender: FDA-Public Use
  Company Number: US-BAYER-2012-022807

PATIENT
  Age: 29 Year
  Sex: Female

DRUGS (14)
  1. DROSPIRENONE AND ETHINYL ESTRADIOL [Suspect]
  2. ACYCLOVIR [Concomitant]
     Dosage: 800 MG, BID
     Route: 048
  3. BLACK COHOSH [Concomitant]
  4. FLAXSEED OIL [Concomitant]
     Dosage: 500 MG, UNK
  5. BORAGE SEED OIL [Concomitant]
     Dosage: 750 MG, UNK
  6. NAPROXEN [Concomitant]
     Route: 048
  7. PHYTOESTROGENS [Concomitant]
  8. SOY [Concomitant]
  9. YASMIN [Suspect]
     Indication: MENOPAUSAL SYMPTOMS
  10. CIPROFLOXACIN [Concomitant]
  11. EVENING PRIMROSE OIL [Concomitant]
     Dosage: 600 MG, UNK
  12. MEXIYAM [Concomitant]
  13. DONG QUAI [Concomitant]
  14. MULTI-VITAMINS [Concomitant]

REACTIONS (1)
  - DEEP VEIN THROMBOSIS [None]
